FAERS Safety Report 9685436 (Version 1)
Quarter: 2013Q4

REPORT INFORMATION
  Report Type: Spontaneous
  Country: US (occurrence: None)
  Receive Date: 20131112
  Receipt Date: 20131112
  Transmission Date: 20140711
  Serious: No
  Sender: FDA-Public Use
  Company Number: None

PATIENT
  Age: 67 Year
  Sex: Male

DRUGS (5)
  1. CHLORASEPTIC SPRAY [Suspect]
     Indication: OROPHARYNGEAL PAIN
     Dates: start: 20131011, end: 20131018
  2. CLONAZEPAM [Concomitant]
  3. FINASTERIDE [Concomitant]
  4. CENTRUM SILVER VIT 3 COMPLES, VIT D3, VIT C [Concomitant]
  5. STOLE SOFTNER [Concomitant]

REACTIONS (3)
  - Product taste abnormal [None]
  - Ageusia [None]
  - Anosmia [None]
